FAERS Safety Report 7935045-8 (Version None)
Quarter: 2011Q4

REPORT INFORMATION
  Report Type: 
  Country: None (occurrence: None)
  Receive Date: 20111122
  Receipt Date: 20111107
  Transmission Date: 20120403
  Serious: Yes (Hospitalization)
  Sender: FDA-Public Use
  Company Number: IT-WATSON-2011-19431

PATIENT
  Age: 50 Year
  Sex: Male

DRUGS (1)
  1. CARBOPLATIN [Suspect]
     Indication: LUNG ADENOCARCINOMA
     Dosage: 450 MG, IN 5% DEXTROSE
     Route: 042

REACTIONS (7)
  - RASH [None]
  - ELECTROCARDIOGRAM ST SEGMENT ELEVATION [None]
  - ELECTROCARDIOGRAM ST SEGMENT DEPRESSION [None]
  - KOUNIS SYNDROME [None]
  - ELECTROCARDIOGRAM T WAVE INVERSION [None]
  - CHEST PAIN [None]
  - ATRIAL FIBRILLATION [None]
